FAERS Safety Report 8166848-5 (Version None)
Quarter: 2012Q1

REPORT INFORMATION
  Report Type: 
  Country: None (occurrence: None)
  Receive Date: 20120227
  Receipt Date: 20120220
  Transmission Date: 20120608
  Serious: Yes (Hospitalization, Other)
  Sender: FDA-Public Use
  Company Number: JP-ROCHE-1036351

PATIENT
  Sex: Female
  Weight: 56 kg

DRUGS (9)
  1. OXALIPLATIN [Concomitant]
     Indication: RECTAL CANCER METASTATIC
     Dosage: DOSAGE IS UNCERTAIN.
     Route: 040
     Dates: start: 20120105, end: 20120105
  2. CRESTOR [Concomitant]
     Route: 048
  3. LEVOLEUCOVORIN CALCIUM [Concomitant]
     Indication: RECTAL CANCER METASTATIC
     Dosage: DOSAGE IS UNCERTAIN.
     Route: 041
     Dates: start: 20120105, end: 20120105
  4. AVASTIN [Suspect]
     Indication: RECTAL CANCER METASTATIC
     Route: 041
     Dates: start: 20120105, end: 20120105
  5. FLUOROURACIL [Concomitant]
     Indication: RECTAL CANCER METASTATIC
     Dosage: DOSAGE IS UNCERTAIN.
     Route: 040
     Dates: start: 20120105, end: 20120105
  6. ACTOS [Concomitant]
     Route: 048
  7. TELMISARTAN [Concomitant]
     Route: 048
  8. LANSOPRAZOLE [Concomitant]
     Route: 048
  9. FLUOROURACIL [Concomitant]
     Dosage: DOSAGE IS UNCERTAIN.
     Route: 041
     Dates: start: 20120105, end: 20120107

REACTIONS (5)
  - CARDIAC FAILURE ACUTE [None]
  - BUNDLE BRANCH BLOCK LEFT [None]
  - PULMONARY OEDEMA [None]
  - DEPRESSED LEVEL OF CONSCIOUSNESS [None]
  - MALIGNANT PLEURAL EFFUSION [None]
